FAERS Safety Report 6491294-X (Version None)
Quarter: 2009Q4

REPORT INFORMATION
  Report Type: 
  Country: None (occurrence: None)
  Receive Date: 20091211
  Receipt Date: 20091207
  Transmission Date: 20100525
  Serious: Yes (Other)
  Sender: FDA-Public Use
  Company Number: PHHY2009FR54039

PATIENT
  Age: 50 Year
  Sex: Male

DRUGS (4)
  1. CERTICAN [Suspect]
     Indication: HEART TRANSPLANT
     Dosage: 4 DF DAILY
  2. CERTICAN [Suspect]
     Dosage: 2 DF DAILY
  3. PROGRAF [Concomitant]
  4. INSULIN [Concomitant]

REACTIONS (4)
  - CARDIOMYOPATHY [None]
  - DYSPNOEA [None]
  - EJECTION FRACTION DECREASED [None]
  - RENAL FAILURE ACUTE [None]
